FAERS Safety Report 6924934-9 (Version None)
Quarter: 2010Q3

REPORT INFORMATION
  Report Type: 
  Country: None (occurrence: None)
  Receive Date: 20100811
  Receipt Date: 20100727
  Transmission Date: 20110219
  Serious: Yes (Death, Other)
  Sender: FDA-Public Use
  Company Number: 2010002243

PATIENT
  Age: 76 Year
  Sex: Female

DRUGS (6)
  1. TARCEVA [Suspect]
     Indication: PRODUCT USED FOR UNKNOWN INDICATION
     Dosage: 100 MG, ORAL
     Route: 048
     Dates: start: 20100325
  2. GEMCITABINE [Concomitant]
  3. ATACAND [Concomitant]
  4. INDAPAMIDE [Concomitant]
  5. LIPITOR [Concomitant]
  6. CALTRATE (CALCIUM CARBONATE) [Concomitant]

REACTIONS (5)
  - HYPOPHAGIA [None]
  - HYPOTENSION [None]
  - PULMONARY EMBOLISM [None]
  - SEPSIS [None]
  - SEPTIC SHOCK [None]
